FAERS Safety Report 25403740 (Version 1)
Quarter: 2025Q2

REPORT INFORMATION
  Report Type: Spontaneous
  Country: US (occurrence: US)
  Receive Date: 20250606
  Receipt Date: 20250606
  Transmission Date: 20250717
  Serious: No
  Sender: Harrow Health
  Company Number: US-HARROW-HAR-2025-US-00193

PATIENT

DRUGS (1)
  1. NATACYN [Suspect]
     Active Substance: NATAMYCIN
     Route: 065

REACTIONS (2)
  - Eye irritation [Unknown]
  - Eye pain [Unknown]
